FAERS Safety Report 23706254 (Version 1)
Quarter: 2024Q2

REPORT INFORMATION
  Report Type: Spontaneous
  Country: US (occurrence: US)
  Receive Date: 20240404
  Receipt Date: 20240404
  Transmission Date: 20240716
  Serious: No
  Sender: FDA-Public Use
  Company Number: US-THE RITEDOSE CORPORATION-2023RIT000119

PATIENT

DRUGS (3)
  1. ALBUTEROL SULFATE [Suspect]
     Active Substance: ALBUTEROL SULFATE
     Indication: Asthma
     Dosage: 2.5 MG/3 ML BID
     Route: 055
     Dates: start: 2023
  2. ALBUTEROL SULFATE [Suspect]
     Active Substance: ALBUTEROL SULFATE
     Indication: Chronic obstructive pulmonary disease
     Dosage: 2.5 MG/3 ML BID
     Route: 055
     Dates: start: 2023
  3. ALBUTEROL [Concomitant]
     Active Substance: ALBUTEROL
     Indication: Product used for unknown indication

REACTIONS (5)
  - Chest discomfort [Not Recovered/Not Resolved]
  - Malaise [Not Recovered/Not Resolved]
  - Product residue present [Not Recovered/Not Resolved]
  - Liquid product physical issue [Unknown]
  - Product quality issue [Unknown]

NARRATIVE: CASE EVENT DATE: 20230101
